FAERS Safety Report 24887158 (Version 3)
Quarter: 2025Q3

REPORT INFORMATION
  Report Type: Spontaneous
  Country: JP (occurrence: JP)
  Receive Date: 20250127
  Receipt Date: 20250722
  Transmission Date: 20251020
  Serious: Yes (Life-Threatening, Hospitalization, Disabling, Other)
  Sender: ALEXION PHARMACEUTICALS
  Company Number: JP-ASTRAZENECA-240136783_013120_P_1

PATIENT
  Age: 73 Year
  Sex: Male
  Weight: 61 kg

DRUGS (19)
  1. DURVALUMAB [Suspect]
     Active Substance: DURVALUMAB
     Indication: Bile duct cancer
     Dosage: 1500 MILLIGRAM, Q3W
     Dates: start: 20240206, end: 20240513
  2. DURVALUMAB [Suspect]
     Active Substance: DURVALUMAB
     Dosage: 1500 MILLIGRAM, Q4W
  3. DURVALUMAB [Suspect]
     Active Substance: DURVALUMAB
     Dosage: 1500 MILLIGRAM, Q3W
     Dates: start: 20240617, end: 20240930
  4. DURVALUMAB [Suspect]
     Active Substance: DURVALUMAB
     Dosage: 1500 MILLIGRAM, Q4W
     Dates: start: 20241028, end: 20241028
  5. CISPLATIN [Suspect]
     Active Substance: CISPLATIN
     Indication: Bile duct cancer
     Dosage: DOSE UNKNOWN, QW
     Route: 065
     Dates: start: 20240206, end: 20240430
  6. CISPLATIN [Suspect]
     Active Substance: CISPLATIN
     Dosage: 20 MILLIGRAM, QW
     Route: 065
     Dates: start: 20240513, end: 20240527
  7. CISPLATIN [Suspect]
     Active Substance: CISPLATIN
     Dosage: UNK, QW
     Route: 065
     Dates: start: 20240617, end: 20240705
  8. CISPLATIN [Suspect]
     Active Substance: CISPLATIN
     Dosage: UNK, QW
     Route: 065
     Dates: start: 2024, end: 20240907
  9. GEMZAR [Concomitant]
     Active Substance: GEMCITABINE HYDROCHLORIDE
     Indication: Bile duct cancer
     Dosage: UNK, QW
     Route: 065
     Dates: start: 20240206, end: 20240325
  10. GEMZAR [Concomitant]
     Active Substance: GEMCITABINE HYDROCHLORIDE
     Dosage: 1300 MILLIGRAM, QW
     Route: 065
     Dates: start: 20240408, end: 20240430
  11. GEMZAR [Concomitant]
     Active Substance: GEMCITABINE HYDROCHLORIDE
     Dosage: 1000 MILLIGRAM, QW
     Route: 065
     Dates: start: 20240513, end: 20240527
  12. GEMZAR [Concomitant]
     Active Substance: GEMCITABINE HYDROCHLORIDE
     Route: 065
     Dates: start: 20240617, end: 20240907
  13. ASPIRIN [Concomitant]
     Active Substance: ASPIRIN
     Dosage: IN THE MORNING
     Dates: start: 202311
  14. PRASUGREL HYDROCHLORIDE [Concomitant]
     Active Substance: PRASUGREL HYDROCHLORIDE
     Dosage: IN THE MORNING
  15. VONOPRAZAN FUMARATE [Concomitant]
     Active Substance: VONOPRAZAN FUMARATE
     Dosage: IN THE MORNING
  16. ROSUVASTATIN [Concomitant]
     Active Substance: ROSUVASTATIN
     Dosage: IN THE MORNING
  17. ISOSORBIDE DINITRATE [Concomitant]
     Active Substance: ISOSORBIDE DINITRATE
  18. SILODOSIN [Concomitant]
     Active Substance: SILODOSIN
     Dosage: 4 MILLIGRAM, QD
  19. SODIUM FERROUS CITRATE [Concomitant]
     Active Substance: SODIUM FERROUS CITRATE

REACTIONS (9)
  - Atrioventricular block complete [Recovered/Resolved]
  - Cholangitis [Recovering/Resolving]
  - Hyponatraemia [Recovered/Resolved]
  - Neutrophil count decreased [Unknown]
  - Anaemia [Recovered/Resolved]
  - Malaise [Unknown]
  - Blood creatinine increased [Unknown]
  - Lymphadenopathy [Unknown]
  - Immune-mediated hypophysitis [Recovering/Resolving]

NARRATIVE: CASE EVENT DATE: 20240401
